FAERS Safety Report 24796822 (Version 1)
Quarter: 2025Q1

REPORT INFORMATION
  Report Type: Spontaneous
  Country: US (occurrence: US)
  Receive Date: 20250101
  Receipt Date: 20250101
  Transmission Date: 20250408
  Serious: No
  Sender: TEVA
  Company Number: US-TEVA-VS-3276752

PATIENT
  Age: 43 Year
  Sex: Female

DRUGS (6)
  1. ADDERALL [Suspect]
     Active Substance: AMPHETAMINE ASPARTATE\AMPHETAMINE SULFATE\DEXTROAMPHETAMINE SACCHARATE\DEXTROAMPHETAMINE SULFATE
     Indication: Product used for unknown indication
     Route: 065
  2. CRISABOROLE [Concomitant]
     Active Substance: CRISABOROLE
     Indication: Product used for unknown indication
  3. XYWAV [Suspect]
     Active Substance: CALCIUM OXYBATE\MAGNESIUM OXYBATE\POTASSIUM OXYBATE\SODIUM OXYBATE
     Indication: Product used for unknown indication
     Dosage: TWICE NIGHTLY
     Route: 065
  4. NUVIGIL [Suspect]
     Active Substance: ARMODAFINIL
     Indication: Product used for unknown indication
     Route: 065
     Dates: start: 20220603
  5. RITALIN [Suspect]
     Active Substance: METHYLPHENIDATE HYDROCHLORIDE
     Indication: Product used for unknown indication
     Route: 065
  6. TRIAMCINOLONE [Concomitant]
     Active Substance: TRIAMCINOLONE
     Indication: Product used for unknown indication
     Route: 065
     Dates: start: 20191212

REACTIONS (13)
  - Malaise [Unknown]
  - Abdominal discomfort [Recovered/Resolved]
  - Nausea [Recovered/Resolved]
  - Mental disorder [Unknown]
  - Sleep paralysis [Unknown]
  - Hot flush [Unknown]
  - Gastroenteritis viral [Unknown]
  - Feeling abnormal [Unknown]
  - Headache [Unknown]
  - Product dose omission issue [Unknown]
  - Intentional dose omission [Unknown]
  - Product administration interrupted [Unknown]
  - Nightmare [Unknown]

NARRATIVE: CASE EVENT DATE: 20240701
